FAERS Safety Report 22194358 (Version 2)
Quarter: 2023Q2

REPORT INFORMATION
  Report Type: Spontaneous
  Country: PT (occurrence: None)
  Receive Date: 20230411
  Receipt Date: 20230505
  Transmission Date: 20230721
  Serious: Yes (Hospitalization, Other)
  Sender: FDA-Public Use
  Company Number: PT-Hikma Pharmaceuticals-PT-H14001-23-01012

PATIENT
  Age: 57 Year
  Sex: Male

DRUGS (19)
  1. GEMCITABINE [Suspect]
     Active Substance: GEMCITABINE
     Indication: Metastases to lymph nodes
     Route: 065
     Dates: start: 201607, end: 201701
  2. GEMCITABINE [Suspect]
     Active Substance: GEMCITABINE
     Indication: Metastases to bone
     Dosage: 1000 MG/M2, 27 CYCLES WITH EACH CYCLE BEING ADMINISTERED EVERY 2 TO 3 WEEKS (DEPENDING ON BLOOD COUN
     Route: 065
     Dates: start: 201806, end: 202006
  3. GEMCITABINE [Suspect]
     Active Substance: GEMCITABINE
     Indication: Follicular thyroid cancer
  4. GEMCITABINE [Suspect]
     Active Substance: GEMCITABINE
     Indication: Metastases to lung
  5. GEMCITABINE [Suspect]
     Active Substance: GEMCITABINE
     Indication: Metastases to the mediastinum
  6. GEMCITABINE [Suspect]
     Active Substance: GEMCITABINE
     Indication: Thyroid cancer metastatic
  7. OXALIPLATIN [Suspect]
     Active Substance: OXALIPLATIN
     Indication: Metastases to lung
     Route: 065
     Dates: start: 201607, end: 2016
  8. OXALIPLATIN [Suspect]
     Active Substance: OXALIPLATIN
     Indication: Follicular thyroid cancer
     Dosage: REDUCED BY 20%
     Route: 065
     Dates: end: 201701
  9. OXALIPLATIN [Suspect]
     Active Substance: OXALIPLATIN
     Indication: Thyroid cancer metastatic
     Dosage: 100 MG/M2, 27 CYCLES WITH EACH CYCLE BEING ADMINISTERED EVERY 2 TO 3 WEEKS (DEPENDING ON BLOOD COUNT
     Route: 065
     Dates: start: 201806, end: 202006
  10. OXALIPLATIN [Suspect]
     Active Substance: OXALIPLATIN
     Indication: Metastases to bone
  11. OXALIPLATIN [Suspect]
     Active Substance: OXALIPLATIN
     Indication: Metastases to lymph nodes
  12. OXALIPLATIN [Suspect]
     Active Substance: OXALIPLATIN
     Indication: Metastases to the mediastinum
  13. OXYGEN [Concomitant]
     Active Substance: OXYGEN
     Indication: Dyspnoea
     Dosage: UNKNOWN
     Route: 065
     Dates: start: 2016, end: 2017
  14. SUNITINIB [Concomitant]
     Active Substance: SUNITINIB
     Indication: Follicular thyroid cancer
     Route: 065
     Dates: start: 201510
  15. SUNITINIB [Concomitant]
     Active Substance: SUNITINIB
     Indication: Metastases to lung
     Route: 065
     Dates: start: 2015
  16. SUNITINIB [Concomitant]
     Active Substance: SUNITINIB
     Indication: Metastases to lymph nodes
  17. SUNITINIB [Concomitant]
     Active Substance: SUNITINIB
     Indication: Metastases to the mediastinum
  18. SUNITINIB [Concomitant]
     Active Substance: SUNITINIB
     Indication: Metastases to bone
  19. SUNITINIB [Concomitant]
     Active Substance: SUNITINIB
     Indication: Thyroid cancer metastatic

REACTIONS (6)
  - Superior vena cava syndrome [Unknown]
  - Thyroglobulin increased [Recovered/Resolved]
  - Haematotoxicity [Unknown]
  - Peripheral sensory neuropathy [Unknown]
  - Pneumonia [Unknown]
  - Off label use [Unknown]

NARRATIVE: CASE EVENT DATE: 20160101
